FAERS Safety Report 16039532 (Version 2)
Quarter: 2022Q4

REPORT INFORMATION
  Report Type: Spontaneous
  Country: CA (occurrence: CA)
  Receive Date: 20190306
  Receipt Date: 20221024
  Transmission Date: 20230113
  Serious: Yes (Hospitalization)
  Sender: FDA-Public Use
  Company Number: CA-JNJFOC-20190240118

PATIENT
  Age: 12 Year
  Sex: Female

DRUGS (1)
  1. TYLENOL [Suspect]
     Active Substance: ACETAMINOPHEN
     Indication: Product used for unknown indication
     Dosage: 15 TO 17 TABLETS IN OVERDOSE
     Route: 065
     Dates: start: 20031126

REACTIONS (10)
  - Abdominal pain [Unknown]
  - Hypokalaemia [Unknown]
  - Nausea [Unknown]
  - Vomiting [Unknown]
  - Alanine aminotransferase increased [Unknown]
  - Aspartate aminotransferase increased [Unknown]
  - Blood alkaline phosphatase increased [Unknown]
  - Intentional overdose [Unknown]
  - International normalised ratio increased [Unknown]
  - Toxicity to various agents [Unknown]

NARRATIVE: CASE EVENT DATE: 20031126
